FAERS Safety Report 14590322 (Version 2)
Quarter: 2019Q2

REPORT INFORMATION
  Report Type: Spontaneous
  Country: US (occurrence: US)
  Receive Date: 20180302
  Receipt Date: 20190430
  Transmission Date: 20190711
  Serious: Yes (Hospitalization)
  Sender: FDA-Public Use
  Company Number: US-PFIZER INC-2018085276

PATIENT
  Age: 72 Year
  Sex: Male
  Weight: 72.57 kg

DRUGS (4)
  1. RAPAMUNE [Suspect]
     Active Substance: SIROLIMUS
     Indication: BONE MARROW TRANSPLANT
     Dosage: 0.5 ML, PER DAY (ONE HALF OF A CC DAILY)
     Route: 048
     Dates: start: 20180126
  2. RAPAMUNE [Suspect]
     Active Substance: SIROLIMUS
     Dosage: 0.7 ML, DAILY
     Route: 048
  3. RAPAMUNE [Suspect]
     Active Substance: SIROLIMUS
     Dosage: 0.6 ML, DAILY
     Route: 048
  4. RAPAMUNE [Suspect]
     Active Substance: SIROLIMUS
     Dosage: UNK(20X2)
     Dates: start: 2016, end: 201804

REACTIONS (2)
  - Product use in unapproved indication [Not Recovered/Not Resolved]
  - Blood count abnormal [Not Recovered/Not Resolved]

NARRATIVE: CASE EVENT DATE: 2016
